FAERS Safety Report 17461846 (Version 1)
Quarter: 2020Q1

REPORT INFORMATION
  Report Type: Spontaneous
  Country: US (occurrence: US)
  Receive Date: 20200226
  Receipt Date: 20200226
  Transmission Date: 20200409
  Serious: No
  Sender: FDA-Public Use
  Company Number: US-NOVOPROD-641010

PATIENT
  Age: 43 Year
  Sex: Female
  Weight: 70.75 kg

DRUGS (2)
  1. SAXENDA [Suspect]
     Active Substance: LIRAGLUTIDE
     Indication: WEIGHT DECREASED
     Dosage: 0.6 MG, QD
     Route: 058
     Dates: start: 201709
  2. SAXENDA [Suspect]
     Active Substance: LIRAGLUTIDE
     Dosage: UNK
     Route: 058

REACTIONS (2)
  - Weight increased [Not Recovered/Not Resolved]
  - Therapeutic product effect decreased [Not Recovered/Not Resolved]

NARRATIVE: CASE EVENT DATE: 201810
